FAERS Safety Report 18917419 (Version 1)
Quarter: 2021Q1

REPORT INFORMATION
  Report Type: Spontaneous
  Country: PR (occurrence: PR)
  Receive Date: 20210219
  Receipt Date: 20210219
  Transmission Date: 20210420
  Serious: Yes (Other)
  Sender: FDA-Public Use
  Company Number: PR-ASTRAZENECA-2021A057671

PATIENT
  Age: 66 Year
  Sex: Male

DRUGS (5)
  1. METROPLOL (METOPROLOL TARTRATE) [Suspect]
     Active Substance: METOPROLOL TARTRATE
     Route: 065
  2. NORVASC [Concomitant]
     Active Substance: AMLODIPINE BESYLATE
  3. BRILINTA [Suspect]
     Active Substance: TICAGRELOR
     Indication: ACUTE CORONARY SYNDROME
     Route: 048
     Dates: start: 202101
  4. ASPIRIN. [Concomitant]
     Active Substance: ASPIRIN
  5. INDUR [Concomitant]

REACTIONS (1)
  - Angioedema [Unknown]
